FAERS Safety Report 12186784 (Version 4)
Quarter: 2016Q2

REPORT INFORMATION
  Report Type: Spontaneous
  Country: US (occurrence: US)
  Receive Date: 20160317
  Receipt Date: 20160608
  Transmission Date: 20160815
  Serious: No
  Sender: FDA-Public Use
  Company Number: US-PFIZER INC-2016128236

PATIENT
  Age: 86 Year
  Sex: Male

DRUGS (7)
  1. OMEPRAZOLE. [Concomitant]
     Active Substance: OMEPRAZOLE
     Dosage: 20 MG, 1X/DAY
     Route: 048
  2. LYRICA [Suspect]
     Active Substance: PREGABALIN
     Indication: NEURALGIA
  3. CALCIUM + VITAMIN D [Concomitant]
     Active Substance: CALCIUM\VITAMIN D
     Dosage: 1 DF, 1X/DAY (CALCIUM 600MG + VIT D TAKE ONE BY MOUTH DAILY)
  4. LYRICA [Suspect]
     Active Substance: PREGABALIN
     Indication: HERPES ZOSTER
     Dosage: 150 MG, 2X/DAY (X7 DAYS)
     Route: 048
     Dates: start: 20160129, end: 20160201
  5. ATENOLOL. [Concomitant]
     Active Substance: ATENOLOL
     Dosage: 12.5 MG, DAILY (25 MG TABS TAKE 1/2 TAB BY MOUTH DAILY)
     Route: 048
  6. ALLOPURINOL. [Concomitant]
     Active Substance: ALLOPURINOL
     Dosage: 300 MG, DAILY
     Route: 048
  7. VALACYCLOVIR [Concomitant]
     Active Substance: VALACYCLOVIR HYDROCHLORIDE
     Dosage: 1 G, 3X/DAY
     Route: 048
     Dates: start: 20160129

REACTIONS (7)
  - Malaise [Unknown]
  - Diarrhoea [Unknown]
  - Abdominal pain upper [Unknown]
  - Nausea [Unknown]
  - Dizziness [Unknown]
  - Drug ineffective [Unknown]
  - Chest pain [Unknown]

NARRATIVE: CASE EVENT DATE: 20160129
